FAERS Safety Report 13619529 (Version 1)
Quarter: 2017Q2

REPORT INFORMATION
  Report Type: Spontaneous
  Country: US (occurrence: US)
  Receive Date: 20170606
  Receipt Date: 20170606
  Transmission Date: 20170830
  Serious: Yes (Other)
  Sender: FDA-Public Use
  Company Number: None

PATIENT
  Age: 51 Year
  Sex: Female
  Weight: 74.25 kg

DRUGS (6)
  1. CYMBALTA [Concomitant]
     Active Substance: DULOXETINE HYDROCHLORIDE
  2. CALCIUM [Concomitant]
     Active Substance: CALCIUM
  3. LEVOFLOXACIN 500 MG [Suspect]
     Active Substance: LEVOFLOXACIN
     Indication: EAR INFECTION
     Dosage: ?          QUANTITY:10 TABLET(S);?
     Route: 048
     Dates: start: 20170530, end: 20170603
  4. MAGNESIUM [Concomitant]
     Active Substance: MAGNESIUM
  5. ENBREL [Concomitant]
     Active Substance: ETANERCEPT
  6. IBUPROFEN. [Concomitant]
     Active Substance: IBUPROFEN

REACTIONS (9)
  - Pain in extremity [None]
  - Joint swelling [None]
  - Fatigue [None]
  - Muscular weakness [None]
  - Arthralgia [None]
  - Musculoskeletal pain [None]
  - Influenza like illness [None]
  - Back pain [None]
  - Carpal tunnel syndrome [None]

NARRATIVE: CASE EVENT DATE: 20170601
